FAERS Safety Report 12401374 (Version 1)
Quarter: 2016Q2

REPORT INFORMATION
  Report Type: Spontaneous
  Country: PK (occurrence: PK)
  Receive Date: 20160525
  Receipt Date: 20160525
  Transmission Date: 20160815
  Serious: Yes (Other)
  Sender: FDA-Public Use
  Company Number: PK-B.I. PHARMACEUTICALS,INC./RIDGEFIELD-2016-BI-31834BI

PATIENT
  Age: 42 Year
  Sex: Male

DRUGS (9)
  1. JARDIANCE [Suspect]
     Active Substance: EMPAGLIFLOZIN
     Indication: TYPE 2 DIABETES MELLITUS
     Dosage: 25 MG
     Route: 065
  2. GLARGINE [Concomitant]
     Route: 065
  3. METFORMIN [Concomitant]
     Active Substance: METFORMIN HYDROCHLORIDE
     Dosage: 2000 MG
     Route: 065
  4. PIOGLITAZONE. [Concomitant]
     Active Substance: PIOGLITAZONE
     Indication: TYPE 2 DIABETES MELLITUS
     Dosage: 30 MG
     Route: 065
  5. LIRAGLUTIDE [Concomitant]
     Active Substance: LIRAGLUTIDE
     Indication: TYPE 2 DIABETES MELLITUS
     Dosage: ALONG WITH SELF-ADJUSTED INSULIN DOSES
     Route: 065
  6. ASPART [Concomitant]
     Dosage: DECREASED THE INSULIN ASPART BEFORE EACH MEAL
     Route: 065
  7. METFORMIN [Concomitant]
     Active Substance: METFORMIN HYDROCHLORIDE
     Indication: TYPE 2 DIABETES MELLITUS
     Dosage: 1500 MG
     Route: 065
  8. GLARGINE [Concomitant]
     Indication: TYPE 2 DIABETES MELLITUS
     Dosage: FORMULATION: INJECTION;
     Route: 065
  9. ASPART [Concomitant]
     Indication: TYPE 2 DIABETES MELLITUS
     Dosage: FORMULATION: INJECTION; 12 UNITS BEFORE BREAKFAST, 18 UNITS BEFORE LUNCH, 24 UNITS BEFORE DINNER
     Route: 065

REACTIONS (1)
  - Diabetic ketoacidosis [Recovered/Resolved]
